FAERS Safety Report 16817362 (Version 1)
Quarter: 2019Q3

REPORT INFORMATION
  Report Type: Report from Study
  Country: US (occurrence: US)
  Receive Date: 20190917
  Receipt Date: 20190917
  Transmission Date: 20191005
  Serious: Yes (Hospitalization)
  Sender: FDA-Public Use
  Company Number: US-EXELIXIS-XL18419023762

PATIENT
  Age: 75 Year
  Sex: Female
  Weight: 53.03 kg

DRUGS (8)
  1. MARINOL [Concomitant]
     Active Substance: DRONABINOL
     Dosage: 5 MG, BID
     Route: 048
  2. CABOZANTINIB [Suspect]
     Active Substance: CABOZANTINIB
     Indication: CLEAR CELL RENAL CELL CARCINOMA
     Dosage: 60 MG, QD
     Route: 048
     Dates: start: 20190524, end: 20190816
  3. CB-839 OR PLACEBO [Suspect]
     Active Substance: TELAGLENASTAT
     Indication: CLEAR CELL RENAL CELL CARCINOMA
     Dosage: 800 MG, BID
     Route: 048
     Dates: start: 20190524, end: 20190816
  4. LEVOTHYROXINE. [Concomitant]
     Active Substance: LEVOTHYROXINE
     Dosage: 100 UG, QD
     Route: 048
  5. NALOXEGOL [Concomitant]
     Active Substance: NALOXEGOL
     Dosage: 12.5 MG, QD
     Route: 048
  6. HYDROCORTISONE. [Concomitant]
     Active Substance: HYDROCORTISONE
     Dosage: 10 MG, BID
     Route: 048
  7. ELIQUIS [Concomitant]
     Active Substance: APIXABAN
     Dosage: 2.5 MG, BID
     Route: 048
  8. FENTANYL. [Concomitant]
     Active Substance: FENTANYL
     Dosage: 1 {DF}
     Route: 061

REACTIONS (3)
  - Cellulitis [Recovering/Resolving]
  - Skin infection [Recovering/Resolving]
  - Urinary tract infection [Recovering/Resolving]

NARRATIVE: CASE EVENT DATE: 20190825
